FAERS Safety Report 10313765 (Version 1)
Quarter: 2014Q3

REPORT INFORMATION
  Report Type: Spontaneous
  Country: US (occurrence: US)
  Receive Date: 20140718
  Receipt Date: 20140718
  Transmission Date: 20150326
  Serious: No
  Sender: FDA-Public Use
  Company Number: US-ASTRAZENECA-2014SE49501

PATIENT
  Sex: Female

DRUGS (2)
  1. TENORMIN [Suspect]
     Active Substance: ATENOLOL
     Dosage: GENERIC
     Route: 048
     Dates: start: 2009
  2. TENORMIN [Suspect]
     Active Substance: ATENOLOL
     Route: 048

REACTIONS (3)
  - Blood pressure inadequately controlled [Unknown]
  - Hypersensitivity [Unknown]
  - Abnormal dreams [Unknown]

NARRATIVE: CASE EVENT DATE: 2009
